FAERS Safety Report 21056872 (Version 3)
Quarter: 2022Q3

REPORT INFORMATION
  Report Type: Report from Study
  Country: US (occurrence: US)
  Receive Date: 20220708
  Receipt Date: 20220718
  Transmission Date: 20221027
  Serious: Yes (Hospitalization)
  Sender: FDA-Public Use
  Company Number: US-JNJFOC-20220703836

PATIENT
  Age: 17 Year
  Sex: Female
  Weight: 52.4 kg

DRUGS (6)
  1. INFLIXIMAB [Suspect]
     Active Substance: INFLIXIMAB
     Indication: Colitis ulcerative
     Route: 041
     Dates: start: 20121101
  2. INFLIXIMAB [Suspect]
     Active Substance: INFLIXIMAB
     Route: 041
     Dates: start: 20160106, end: 20160412
  3. NEURONTIN [Concomitant]
     Active Substance: GABAPENTIN
  4. XELJANZ [Concomitant]
     Active Substance: TOFACITINIB CITRATE
  5. BUDESONIDE [Concomitant]
     Active Substance: BUDESONIDE
  6. IMODIUM [Concomitant]
     Active Substance: LOPERAMIDE HYDROCHLORIDE

REACTIONS (1)
  - Clostridium difficile infection [Recovered/Resolved]

NARRATIVE: CASE EVENT DATE: 20220314
